FAERS Safety Report 25891662 (Version 1)
Quarter: 2025Q4

REPORT INFORMATION
  Report Type: Spontaneous
  Country: SG (occurrence: SG)
  Receive Date: 20251007
  Receipt Date: 20251007
  Transmission Date: 20260117
  Serious: Yes (Hospitalization, Other)
  Sender: Kenvue
  Company Number: SG-KENVUE-20090800560

PATIENT

DRUGS (1)
  1. ACETAMINOPHEN [Suspect]
     Active Substance: ACETAMINOPHEN
     Indication: Tension headache
     Dosage: 20-30 TABLETS (500 MG), SINGLE
     Route: 048
     Dates: start: 200011

REACTIONS (3)
  - Hepatocellular injury [Recovered/Resolved]
  - Haemolytic anaemia [Recovering/Resolving]
  - Overdose [Unknown]

NARRATIVE: CASE EVENT DATE: 20001119
